FAERS Safety Report 21613421 (Version 1)
Quarter: 2022Q4

REPORT INFORMATION
  Report Type: Spontaneous
  Country: DK (occurrence: DK)
  Receive Date: 20221118
  Receipt Date: 20221118
  Transmission Date: 20230113
  Serious: Yes (Death)
  Sender: FDA-Public Use
  Company Number: DK-STRIDES ARCOLAB LIMITED-2022SP015389

PATIENT
  Sex: Male

DRUGS (2)
  1. PREDNISOLONE [Suspect]
     Active Substance: PREDNISOLONE
     Indication: VEXAS syndrome
     Dosage: UNK,INITIAL DOSE NOT STATED. LATER, TAPERING OF PREDNISOLONE BELOW 15 MG/DAY WAS NOT POSSIBLE WITHOU
     Route: 065
  2. SECUKINUMAB [Suspect]
     Active Substance: SECUKINUMAB
     Indication: VEXAS syndrome
     Dosage: 300 MILLIGRAM, EVERY 4 WEEKS,300 MG/4 WEEKS
     Route: 065

REACTIONS (2)
  - Cardiac failure [Fatal]
  - Drug ineffective [Fatal]
